FAERS Safety Report 6308938-5 (Version None)
Quarter: 2009Q3

REPORT INFORMATION
  Report Type: 
  Country: None (occurrence: None)
  Receive Date: 20090813
  Receipt Date: 20090623
  Transmission Date: 20100115
  Serious: No
  Sender: FDA-Public Use
  Company Number: US-ALLERGAN-0908809US

PATIENT
  Sex: Male

DRUGS (2)
  1. COMBIGAN [Suspect]
     Indication: GLAUCOMA
     Dosage: 1 GTT, SINGLE AT 21:00
     Route: 047
     Dates: start: 20090622, end: 20090622
  2. XALATAN [Concomitant]
     Indication: GLAUCOMA
     Dosage: 1 GTT, QHS
     Route: 047

REACTIONS (3)
  - EYE IRRITATION [None]
  - EYE PAIN [None]
  - FOREIGN BODY SENSATION IN EYES [None]
